FAERS Safety Report 9687638 (Version 1)
Quarter: 2013Q4

REPORT INFORMATION
  Report Type: Spontaneous
  Country: GB (occurrence: None)
  Receive Date: 20131112
  Receipt Date: 20131112
  Transmission Date: 20140711
  Serious: Yes (Hospitalization, Other)
  Sender: FDA-Public Use
  Company Number: AUR-APL-2013-09378

PATIENT
  Age: 86 Year
  Sex: Female
  Weight: 61 kg

DRUGS (5)
  1. RAMIPRIL (RAMIPRIL) [Suspect]
     Indication: PRODUCT USED FOR UNKNOWN INDICATION
     Dosage: (5 MG, 1 IN 1 D)
  2. BENDROFLUMETHIAZIDE (BENDROFLUMETHIAZIDE) [Suspect]
     Indication: PRODUCT USED FOR UNKNOWN INDICATION
     Dosage: 2.5 MG, 1 IN 1 D
  3. CO-CODAMOL (PANADEINE CO) [Suspect]
     Indication: FALL
     Dosage: 30/500 MG, 2 TABS QDS
  4. SIMVASTATIN (SIMVASTATIN) [Concomitant]
  5. ACETYLSALICYLIC ACID (ACETYLSALICYLIC ACID) [Concomitant]

REACTIONS (8)
  - Confusional state [None]
  - Renal injury [None]
  - Somnolence [None]
  - Urinary tract infection [None]
  - Delirium [None]
  - Constipation [None]
  - Toxicity to various agents [None]
  - Fall [None]
